FAERS Safety Report 21594920 (Version 1)
Quarter: 2022Q4

REPORT INFORMATION
  Report Type: Spontaneous
  Country: BR (occurrence: BR)
  Receive Date: 20221115
  Receipt Date: 20221115
  Transmission Date: 20230112
  Serious: Yes (Hospitalization)
  Sender: FDA-Public Use
  Company Number: BR-PFIZER INC-202201295530

PATIENT
  Age: 11 Year
  Sex: Male
  Weight: 137 kg

DRUGS (6)
  1. TYGACIL [Suspect]
     Active Substance: TIGECYCLINE
     Indication: Bacterial infection
     Dosage: 50 MG
     Dates: start: 20211226, end: 20220105
  2. TYGACIL [Suspect]
     Active Substance: TIGECYCLINE
     Indication: Stenotrophomonas infection
     Dosage: 50 MG, 2X/DAY
     Route: 042
     Dates: start: 20211226, end: 20220105
  3. NEXIUM I.V. [Suspect]
     Active Substance: ESOMEPRAZOLE SODIUM
     Dosage: 40 MG, 1X/DAY
     Dates: start: 20211222, end: 20220203
  4. NEXIUM I.V. [Suspect]
     Active Substance: ESOMEPRAZOLE SODIUM
     Dosage: 40 MG, 1X/DAY
     Route: 042
     Dates: start: 20211222, end: 20220203
  5. KEPPRA [Suspect]
     Active Substance: LEVETIRACETAM
     Dosage: 750 MG, 3X/DAY
     Route: 048
     Dates: start: 20221027
  6. RISPERDAL [Suspect]
     Active Substance: RISPERIDONE
     Dosage: 3 MG, 2X/DAY
     Route: 048
     Dates: start: 20211027, end: 20211226

REACTIONS (3)
  - Pancreatitis [Recovered/Resolved]
  - Lipase increased [Recovered/Resolved]
  - Amylase increased [Recovered/Resolved]

NARRATIVE: CASE EVENT DATE: 20220102
